FAERS Safety Report 6359518-7 (Version None)
Quarter: 2009Q3

REPORT INFORMATION
  Report Type: 
  Country: None (occurrence: None)
  Receive Date: 20090917
  Receipt Date: 20090911
  Transmission Date: 20100115
  Serious: Yes (Other)
  Sender: FDA-Public Use
  Company Number: NL-ROXANE LABORATORIES, INC.-2009-RO-00930RO

PATIENT
  Sex: Female
  Weight: 53 kg

DRUGS (4)
  1. AZATHIOPRINE [Suspect]
     Indication: ANAL ULCER
     Dosage: 125 MG
     Dates: start: 20000101
  2. AZATHIOPRINE [Suspect]
     Indication: RECTAL STENOSIS
  3. AZATHIOPRINE [Suspect]
     Indication: CROHN'S DISEASE
  4. CORTICOSTEROIDS [Suspect]
     Indication: CROHN'S DISEASE
     Route: 061

REACTIONS (5)
  - DECREASED APPETITE [None]
  - ERYTHEMA INFECTIOSUM [None]
  - LEUKOPENIA [None]
  - RASH [None]
  - WEIGHT DECREASED [None]
